FAERS Safety Report 12506281 (Version 1)
Quarter: 2016Q2

REPORT INFORMATION
  Report Type: Report from Study
  Country: US (occurrence: US)
  Receive Date: 20160628
  Receipt Date: 20160628
  Transmission Date: 20160815
  Serious: Yes (Hospitalization)
  Sender: FDA-Public Use
  Company Number: US-ABBVIE-16K-163-1657223-00

PATIENT
  Age: 21 Year
  Sex: Female

DRUGS (1)
  1. HUMIRA [Suspect]
     Active Substance: ADALIMUMAB
     Indication: CROHN^S DISEASE
     Route: 058
     Dates: start: 20160120, end: 201604

REACTIONS (4)
  - Anaemia [Unknown]
  - Post-traumatic pain [Recovering/Resolving]
  - Contusion [Recovering/Resolving]
  - Sternal fracture [Recovering/Resolving]

NARRATIVE: CASE EVENT DATE: 2016
